FAERS Safety Report 9349610 (Version 2)
Quarter: 2014Q1

REPORT INFORMATION
  Report Type: Spontaneous
  Country: US (occurrence: US)
  Receive Date: 20130614
  Receipt Date: 20140210
  Transmission Date: 20141002
  Serious: Yes (Death, Hospitalization)
  Sender: FDA-Public Use
  Company Number: US-B.I. PHARMACEUTICALS,INC./RIDGEFIELD-2013-BI-16568BP

PATIENT
  Sex: Female
  Weight: 68.04 kg

DRUGS (12)
  1. PRADAXA [Suspect]
     Indication: CEREBROVASCULAR ACCIDENT PROPHYLAXIS
     Dosage: 150 MG
     Route: 048
     Dates: start: 20110809, end: 20111209
  2. PRADAXA [Suspect]
     Indication: THROMBOSIS PROPHYLAXIS
  3. PRADAXA [Suspect]
     Indication: ATRIAL FIBRILLATION
  4. AMARYL [Concomitant]
     Dosage: 1 MG
     Route: 048
  5. CLONIDINE [Concomitant]
     Dosage: 0.6 MG
     Route: 048
  6. FENOFIBRATE [Concomitant]
     Dosage: 160 MG
     Route: 048
  7. JANUVIA [Concomitant]
     Dosage: 50 MG
     Route: 048
  8. LOTREL [Concomitant]
     Route: 048
  9. METOPROLOL [Concomitant]
     Dosage: 50 MG
     Route: 048
  10. MOBIC [Concomitant]
     Dosage: 7.5 MG
     Route: 048
  11. OMEPRAZOLE [Concomitant]
     Dosage: 20 MG
     Route: 048
  12. PRAVASTATIN [Concomitant]
     Dosage: 80 MG
     Route: 048

REACTIONS (8)
  - Gastrointestinal haemorrhage [Fatal]
  - Fall [Unknown]
  - Renal failure acute [Unknown]
  - Sepsis [Unknown]
  - Anaemia [Unknown]
  - Cardio-respiratory arrest [Unknown]
  - Shock [Unknown]
  - Acute respiratory failure [Unknown]
